FAERS Safety Report 21074978 (Version 15)
Quarter: 2024Q1

REPORT INFORMATION
  Report Type: Spontaneous
  Country: GB (occurrence: GB)
  Receive Date: 20220713
  Receipt Date: 20240311
  Transmission Date: 20240409
  Serious: Yes (Hospitalization, Other)
  Sender: FDA-Public Use
  Company Number: GB-AUROBINDO-AUR-APL-2022-025867

PATIENT
  Age: 76 Year
  Sex: Female

DRUGS (31)
  1. ATORVASTATIN [Suspect]
     Active Substance: ATORVASTATIN
     Indication: Hypercholesterolaemia
     Dosage: 10 MILLIGRAM, ONCE A DAY (ONE AT NIGHT)
     Route: 048
  2. FUROSEMIDE [Suspect]
     Active Substance: FUROSEMIDE
     Indication: Product used for unknown indication
     Dosage: 20 MILLIGRAM, ONCE A DAY
     Route: 048
  3. LOPERAMIDE [Suspect]
     Active Substance: LOPERAMIDE
     Indication: Product used for unknown indication
     Dosage: AS NECESSARY (PRN (WHEN REQUIRED) )
     Route: 048
  4. LOPERAMIDE [Suspect]
     Active Substance: LOPERAMIDE
     Dosage: WHEN REQUIRED
     Route: 048
  5. ACETAMINOPHEN [Suspect]
     Active Substance: ACETAMINOPHEN
     Indication: Product used for unknown indication
     Dosage: UNK, AS NECESSARY
     Route: 048
  6. ACETAMINOPHEN [Suspect]
     Active Substance: ACETAMINOPHEN
     Dosage: UNK, PRN (WHEN REQUIRED)
     Route: 048
  7. ACETAMINOPHEN [Suspect]
     Active Substance: ACETAMINOPHEN
     Dosage: UNK, PRN (WHEN REQUIRED)
     Route: 048
  8. SERTRALINE HYDROCHLORIDE [Suspect]
     Active Substance: SERTRALINE HYDROCHLORIDE
     Indication: Product used for unknown indication
     Dosage: 100 MILLIGRAM, ONCE A DAY
     Route: 048
  9. SERTRALINE HYDROCHLORIDE [Suspect]
     Active Substance: SERTRALINE HYDROCHLORIDE
     Dosage: 1 DOSAGE FORM, ONCE A DAY (QD TABLET)
     Route: 048
  10. TAMSULOSIN [Suspect]
     Active Substance: TAMSULOSIN
     Indication: Product used for unknown indication
     Dosage: 400 MICROGRAM, ONCE A DAY (400 MICROGRAM, ONE IN THE MORNING)
     Route: 048
  11. TAMSULOSIN [Suspect]
     Active Substance: TAMSULOSIN
     Dosage: ONCE A DAY (QD (AM, ONE IN MORNING)
     Route: 048
  12. CALCIUM CARBONATE\CHOLECALCIFEROL [Suspect]
     Active Substance: CALCIUM CARBONATE\CHOLECALCIFEROL
     Indication: Product used for unknown indication
     Dosage: 1 DOSAGE FORM, ONCE A DAY (ONE IN THE MORNING)
     Route: 048
  13. CREON [Suspect]
     Active Substance: PANCRELIPASE AMYLASE\PANCRELIPASE LIPASE\PANCRELIPASE PROTEASE
     Indication: Product used for unknown indication
     Dosage: 2 DOSAGE FORM, TWO TIMES A DAY (2 WITH EACH MEAL AND ONE WITH SNACKS)
     Route: 048
  14. CREON [Suspect]
     Active Substance: PANCRELIPASE AMYLASE\PANCRELIPASE LIPASE\PANCRELIPASE PROTEASE
     Dosage: 2 WITH EACH MEAL AND ONE WITH SNACKS
     Route: 048
  15. OMEPRAZOLE [Suspect]
     Active Substance: OMEPRAZOLE
     Indication: Duodenal ulcer
     Dosage: 20 MILLIGRAM, ONE IN THE MORNING AND ONE AT NIGHT
     Route: 048
  16. OMEPRAZOLE [Suspect]
     Active Substance: OMEPRAZOLE
     Dosage: 1 DOSAGE FORM, EVERY MORNING
     Route: 065
  17. OMEPRAZOLE [Suspect]
     Active Substance: OMEPRAZOLE
     Dosage: 80 MILLIGRAM, ONCE A DAY(40 MG, BID (ONE IN THE MORNING AND ONE AT NIGHT)
     Route: 048
  18. OMEPRAZOLE [Suspect]
     Active Substance: OMEPRAZOLE
     Dosage: 40 MILLIGRAM, ONCE A DAY  ((ONE IN MORNING AND ONE AT NIGHT)
     Route: 048
  19. OMEPRAZOLE [Suspect]
     Active Substance: OMEPRAZOLE
     Dosage: ONCE A DAY (BID (1 IN MORNING, 1 AT NIGHT)
     Route: 048
  20. OMEPRAZOLE [Suspect]
     Active Substance: OMEPRAZOLE
     Dosage: UNK , BID (ONE IN MORNING AND ONE AT NIGHT)
     Route: 048
  21. SPIRONOLACTONE [Suspect]
     Active Substance: SPIRONOLACTONE
     Indication: Product used for unknown indication
     Dosage: 12.5 MILLIGRAM, ONCE A DAY 9TABLET (HALF IN THE MORNING)
     Route: 048
  22. PANCREATIN [Suspect]
     Active Substance: PANCRELIPASE
     Indication: Product used for unknown indication
     Dosage: UNK (2 WITH EACH MEAL, ONE WITH SNACKS)
     Route: 048
  23. ATORVASTATIN [Concomitant]
     Active Substance: ATORVASTATIN
     Indication: Product used for unknown indication
     Dosage: 10 MILLIGRAM, ONCE A DAY ONE AT NIGHT
     Route: 048
  24. ATORVASTATIN [Concomitant]
     Active Substance: ATORVASTATIN
     Indication: Hypercholesterolaemia
     Dosage: 10 MILLIGRAM, ONCE A DAY
     Route: 048
  25. CREON [Concomitant]
     Active Substance: PANCRELIPASE AMYLASE\PANCRELIPASE LIPASE\PANCRELIPASE PROTEASE
     Indication: Product used for unknown indication
     Dosage: UNK, TWO TIMES A DAY (TWO WITH EACH MEAL AND ONE WITH SNACKS)
     Route: 048
  26. FUROSEMIDE [Concomitant]
     Active Substance: FUROSEMIDE
     Indication: Product used for unknown indication
     Dosage: 20 MILLIGRAM, ONCE A DAY
     Route: 048
  27. FUROSEMIDE [Concomitant]
     Active Substance: FUROSEMIDE
     Dosage: 20 MILLIGRAM, ONCE A DAY(20 MG, QD (20 MG, QD (1 IN MORNING)
     Route: 065
  28. IMODIUM [Concomitant]
     Active Substance: LOPERAMIDE HYDROCHLORIDE
     Indication: Product used for unknown indication
     Dosage: AS NECESSARY
     Route: 048
  29. SPIRONOLACTONE [Concomitant]
     Active Substance: SPIRONOLACTONE
     Indication: Product used for unknown indication
     Dosage: 12.5 MILLIGRAM, ONCE A DAY(HALF IN THE MORNING )
     Route: 048
  30. VITAMIN B [Concomitant]
     Active Substance: VITAMIN B
     Indication: Product used for unknown indication
     Dosage: 2 DOSAGE FORM, ONCE A DAY (ONE IN THE MORNING AND ONE AT NIGHT )
     Route: 048
  31. VITAMIN B [Concomitant]
     Active Substance: VITAMIN B
     Dosage: 1 DOSAGE FORM, ONCE A DAY
     Route: 048

REACTIONS (4)
  - Vomiting [Unknown]
  - Wrong product administered [Recovered/Resolved]
  - Drug dispensed to wrong patient [Unknown]
  - Product dispensing error [Unknown]
